FAERS Safety Report 17631963 (Version 1)
Quarter: 2020Q2

REPORT INFORMATION
  Report Type: Spontaneous
  Country: HU (occurrence: HU)
  Receive Date: 20200406
  Receipt Date: 20200406
  Transmission Date: 20200713
  Serious: Yes (Other)
  Sender: FDA-Public Use
  Company Number: HU-MYLANLABS-2020M1034587

PATIENT
  Age: 57 Year
  Sex: Male

DRUGS (1)
  1. MARFARIN [Suspect]
     Active Substance: WARFARIN
     Indication: PULMONARY EMBOLISM
     Dosage: 10 -13 MG, QD
     Route: 048
     Dates: start: 2012

REACTIONS (3)
  - Feeling hot [Recovered/Resolved]
  - Polyneuropathy [Not Recovered/Not Resolved]
  - Skin burning sensation [Recovered/Resolved]

NARRATIVE: CASE EVENT DATE: 2012
